FAERS Safety Report 16631610 (Version 1)
Quarter: 2019Q3

REPORT INFORMATION
  Report Type: Spontaneous
  Country: US (occurrence: US)
  Receive Date: 20190725
  Receipt Date: 20190725
  Transmission Date: 20191004
  Serious: Yes (Other)
  Sender: FDA-Public Use
  Company Number: US-PFIZER INC-2019314297

PATIENT

DRUGS (1)
  1. BICILLIN C-R 900/300 [Suspect]
     Active Substance: PENICILLIN G BENZATHINE\PENICILLIN G PROCAINE
     Dosage: UNK
     Route: 013

REACTIONS (4)
  - Neuromyopathy [Unknown]
  - Arterial spasm [Unknown]
  - Incorrect route of product administration [Unknown]
  - Dry gangrene [Unknown]
